FAERS Safety Report 4807652-2 (Version None)
Quarter: 2005Q4

REPORT INFORMATION
  Report Type: 
  Country: None (occurrence: None)
  Receive Date: 20051024
  Receipt Date: 20050510
  Transmission Date: 20060501
  Serious: Yes (Other)
  Sender: FDA-Public Use
  Company Number: US-SOLVAY-00205001606

PATIENT
  Sex: Male

DRUGS (1)
  1. ANDROGEL [Suspect]
     Indication: ILL-DEFINED DISORDER
     Dosage: DAILY DOSE: 5 GRAM(S)
     Route: 062
     Dates: start: 20010103, end: 20050317

REACTIONS (3)
  - HAEMATOCRIT INCREASED [None]
  - POLYCYTHAEMIA [None]
  - THROMBOSIS [None]
